FAERS Safety Report 5314577-5 (Version None)
Quarter: 2007Q2

REPORT INFORMATION
  Report Type: 
  Country: None (occurrence: None)
  Receive Date: 20070502
  Receipt Date: 20070423
  Transmission Date: 20071010
  Serious: Yes (Disabling)
  Sender: FDA-Public Use
  Company Number: DE-AVENTIS-200710780DE

PATIENT
  Age: 65 Year
  Sex: Male
  Weight: 69 kg

DRUGS (8)
  1. LANTUS [Suspect]
     Route: 058
     Dates: start: 20050501, end: 20070401
  2. APIDRA [Suspect]
     Route: 058
     Dates: start: 20050601
  3. APIDRA [Suspect]
     Route: 058
     Dates: end: 20070401
  4. HUMALOG                            /01293501/ [Suspect]
     Dosage: DOSE: NOT REPORTED
     Route: 058
     Dates: start: 20061101
  5. ASPIRIN [Concomitant]
     Route: 048
  6. METOPROLOL SUCCINATE [Concomitant]
     Indication: HYPERTENSION
     Dosage: DOSE: 1X1
     Route: 048
  7. DELIX 5 [Concomitant]
     Indication: HYPERTENSION
     Route: 048
  8. SIOFOR [Concomitant]
     Route: 048

REACTIONS (2)
  - DYSGEUSIA [None]
  - PAROSMIA [None]
